FAERS Safety Report 9160482 (Version 1)
Quarter: 2013Q1

REPORT INFORMATION
  Report Type: Spontaneous
  Country: VE (occurrence: VE)
  Receive Date: 20130313
  Receipt Date: 20130313
  Transmission Date: 20140127
  Serious: Yes (Hospitalization)
  Sender: FDA-Public Use
  Company Number: PHHY2011VE95984

PATIENT
  Age: 62 Year
  Sex: Female

DRUGS (5)
  1. ACLASTA [Suspect]
     Indication: OSTEOPOROSIS
     Dosage: 5 MG, ONCE A YEAR
     Route: 042
     Dates: start: 201008
  2. MOTRIN [Concomitant]
     Dosage: 400 MG, BID
  3. CLONAZEPAM [Concomitant]
     Dosage: QHS
  4. APROVEL [Concomitant]
     Indication: BLOOD PRESSURE
     Dosage: 150 MG, MORNINGS
  5. ROCALTROL [Concomitant]
     Dosage: 1 DF, MORNING

REACTIONS (1)
  - Mobility decreased [Unknown]
